FAERS Safety Report 25905851 (Version 1)
Quarter: 2025Q4

REPORT INFORMATION
  Report Type: Spontaneous
  Country: CN (occurrence: CN)
  Receive Date: 20251010
  Receipt Date: 20251010
  Transmission Date: 20260118
  Serious: Yes (Other)
  Sender: ELI LILLY AND COMPANY
  Company Number: CN-Merck Healthcare KGaA-2025049511

PATIENT
  Age: 65 Year
  Sex: Female
  Weight: 65 kg

DRUGS (4)
  1. ERBITUX [Suspect]
     Active Substance: CETUXIMAB
     Indication: Lip and/or oral cavity cancer
     Dosage: 400 MG, UNKNOWN
     Route: 041
     Dates: start: 20250813, end: 20250813
  2. CARBOPLATIN [Concomitant]
     Active Substance: CARBOPLATIN
     Indication: Lip and/or oral cavity cancer
     Dosage: 300 MG, DAILY
     Route: 041
     Dates: start: 20250813, end: 20250813
  3. TORIPALIMAB [Concomitant]
     Active Substance: TORIPALIMAB
     Indication: Lip and/or oral cavity cancer
     Dosage: 240 MG, DAILY
     Route: 041
     Dates: start: 20250813, end: 20250813
  4. PACLITAXEL [Concomitant]
     Active Substance: PACLITAXEL
     Indication: Lip and/or oral cavity cancer
     Dosage: 210 MG, DAILY
     Route: 041
     Dates: start: 20250813, end: 20250813

REACTIONS (7)
  - Cyanosis [Unknown]
  - Chest discomfort [Unknown]
  - Dyspnoea [Unknown]
  - Hyperhidrosis [Unknown]
  - Peripheral coldness [Unknown]
  - Pyrexia [Unknown]
  - Chills [Unknown]

NARRATIVE: CASE EVENT DATE: 20250814
